FAERS Safety Report 26209856 (Version 1)
Quarter: 2025Q4

REPORT INFORMATION
  Report Type: Spontaneous
  Country: US (occurrence: US)
  Receive Date: 20251229
  Receipt Date: 20251229
  Transmission Date: 20260117
  Serious: Yes (Death)
  Sender: MYLAN
  Company Number: US-MYLANLABS-2025M1110668

PATIENT
  Age: 56 Year
  Sex: Male

DRUGS (8)
  1. ABIRATERONE [Suspect]
     Active Substance: ABIRATERONE
     Indication: Prostate cancer metastatic
     Dosage: UNK
  2. ABIRATERONE [Suspect]
     Active Substance: ABIRATERONE
     Dosage: UNK
     Route: 065
  3. ABIRATERONE [Suspect]
     Active Substance: ABIRATERONE
     Dosage: UNK
     Route: 065
  4. ABIRATERONE [Suspect]
     Active Substance: ABIRATERONE
     Dosage: UNK
  5. RADIUM [Suspect]
     Active Substance: RADIUM
     Indication: Prostate cancer metastatic
     Dosage: UNK
  6. RADIUM [Suspect]
     Active Substance: RADIUM
     Dosage: UNK
     Route: 065
  7. RADIUM [Suspect]
     Active Substance: RADIUM
     Dosage: UNK
     Route: 065
  8. RADIUM [Suspect]
     Active Substance: RADIUM
     Dosage: UNK

REACTIONS (1)
  - Drug ineffective [Fatal]
